FAERS Safety Report 8082740-9 (Version None)
Quarter: 2012Q1

REPORT INFORMATION
  Report Type: 
  Country: None (occurrence: None)
  Receive Date: 20120127
  Receipt Date: 20110301
  Transmission Date: 20120608
  Serious: No
  Sender: FDA-Public Use
  Company Number: US-ABBOTT-11P-163-0708341-00

PATIENT
  Age: 23 Year
  Sex: Female

DRUGS (13)
  1. IRON [Concomitant]
     Indication: PRODUCT USED FOR UNKNOWN INDICATION
  2. PAROXETINE [Concomitant]
     Indication: DEPRESSION
  3. ACYCLOVIR [Concomitant]
     Indication: HERPES VIRUS INFECTION
  4. PERCOCET [Concomitant]
     Indication: BREAKTHROUGH PAIN
  5. CALCIUM [Concomitant]
     Indication: PRODUCT USED FOR UNKNOWN INDICATION
  6. MAGNESIUM [Concomitant]
     Indication: PRODUCT USED FOR UNKNOWN INDICATION
  7. HUMIRA [Suspect]
     Indication: CROHN'S DISEASE
     Dates: start: 20101101, end: 20110226
  8. ONDANSETRON [Concomitant]
     Indication: NAUSEA
  9. VITAMIN D [Concomitant]
     Indication: PRODUCT USED FOR UNKNOWN INDICATION
  10. ZINC SULFATE [Concomitant]
     Indication: PRODUCT USED FOR UNKNOWN INDICATION
  11. JUICE PLUS [Concomitant]
     Indication: PRODUCT USED FOR UNKNOWN INDICATION
  12. OXYCONTIN [Concomitant]
     Indication: PAIN
  13. VIT E [Concomitant]
     Indication: PRODUCT USED FOR UNKNOWN INDICATION

REACTIONS (5)
  - CROHN'S DISEASE [None]
  - INFECTION [None]
  - COUGH [None]
  - DRUG DOSE OMISSION [None]
  - SINUS CONGESTION [None]
